FAERS Safety Report 10027672 (Version 1)
Quarter: 2014Q1

REPORT INFORMATION
  Report Type: Spontaneous
  Country: DE (occurrence: None)
  Receive Date: 20140319
  Receipt Date: 20140319
  Transmission Date: 20141002
  Serious: Yes (Death)
  Sender: FDA-Public Use
  Company Number: B0975016A

PATIENT
  Sex: 0

DRUGS (5)
  1. ETOPOSIDE [Suspect]
     Indication: PLASMA CELL MYELOMA
     Dosage: UNK/UNK/UNKNOWN
  2. MELPHALAN [Suspect]
     Indication: PLASMA CELL MYELOMA
     Dosage: UNK/UNK/UNKNOWN
  3. DEXAMETHASONE [Suspect]
     Indication: PLASMA CELL MYELOMA
  4. CARMUSTINE [Suspect]
     Indication: PLASMA CELL MYELOMA
  5. CYTARABINE [Suspect]
     Indication: PLASMA CELL MYELOMA

REACTIONS (3)
  - Intestinal perforation [None]
  - Sepsis [None]
  - Multi-organ failure [None]
